FAERS Safety Report 7226566-4 (Version None)
Quarter: 2010Q4

REPORT INFORMATION
  Report Type: 
  Country: None (occurrence: None)
  Receive Date: 20101126
  Receipt Date: 20100920
  Transmission Date: 20110411
  Serious: No
  Sender: FDA-Public Use
  Company Number: 315191

PATIENT
  Age: 54 Year
  Sex: Male

DRUGS (1)
  1. VICTOZA [Suspect]
     Indication: TYPE 2 DIABETES MELLITUS
     Dosage: 0.6 MG, QD, SUBCUTANEOUS
     Route: 058
     Dates: start: 20100918

REACTIONS (6)
  - DIZZINESS [None]
  - DRY MOUTH [None]
  - FATIGUE [None]
  - INCORRECT DOSE ADMINISTERED [None]
  - THINKING ABNORMAL [None]
  - THIRST [None]
